FAERS Safety Report 4665036-4 (Version None)
Quarter: 2005Q2

REPORT INFORMATION
  Report Type: 
  Country: None (occurrence: None)
  Receive Date: 20050517
  Receipt Date: 20050509
  Transmission Date: 20051028
  Serious: Yes (Life-Threatening, Hospitalization)
  Sender: FDA-Public Use
  Company Number: 214364

PATIENT
  Age: 48 Year
  Sex: Male

DRUGS (5)
  1. MABTHERA(RITUXIMAB) CONC FOR SOLUTION FOR INFUSION [Suspect]
     Indication: NON-HODGKIN'S LYMPHOMA
     Dosage: 700 MG, INTRAVENOUS
     Route: 042
     Dates: start: 20050419
  2. CISPLATIN [Suspect]
     Indication: NON-HODGKIN'S LYMPHOMA
     Dosage: 187 MG, INTRAVENOUS
     Route: 042
     Dates: start: 20050422
  3. CYTARABINE [Suspect]
     Indication: NON-HODGKIN'S LYMPHOMA
     Dosage: 7480 MG, INTRAVENOUS
     Route: 042
     Dates: start: 20050424
  4. DEXAMETHASONE [Concomitant]
  5. NEUPOGEN [Concomitant]

REACTIONS (1)
  - FEBRILE NEUTROPENIA [None]
